FAERS Safety Report 8615113-8 (Version None)
Quarter: 2012Q3

REPORT INFORMATION
  Report Type: 
  Country: None (occurrence: None)
  Receive Date: 20120823
  Receipt Date: 20120815
  Transmission Date: 20120928
  Serious: Yes (Hospitalization)
  Sender: FDA-Public Use
  Company Number: JP-ABBOTT-12P-087-0945283-00

PATIENT
  Sex: Male
  Weight: 61.2 kg

DRUGS (7)
  1. HUMIRA [Suspect]
     Dates: start: 20120529, end: 20120529
  2. CLOSTRIDIUM BUTYRICUM [Concomitant]
     Indication: CROHN'S DISEASE
     Route: 048
     Dates: start: 20120229
  3. TPN [Concomitant]
     Indication: CROHN'S DISEASE
     Route: 048
     Dates: start: 20120529
  4. MESALAMINE [Concomitant]
     Dates: start: 20120417
  5. HUMIRA [Suspect]
     Indication: CROHN'S DISEASE
     Route: 058
     Dates: start: 20120515, end: 20120515
  6. HUMIRA [Suspect]
     Dates: start: 20120615
  7. MESALAMINE [Concomitant]
     Indication: CROHN'S DISEASE
     Dates: start: 20120229, end: 20120416

REACTIONS (7)
  - PLATELET COUNT DECREASED [None]
  - ANAEMIA [None]
  - HAEMATOCHEZIA [None]
  - PYREXIA [None]
  - WHITE BLOOD CELL COUNT DECREASED [None]
  - SEPSIS [None]
  - ABDOMINAL ADHESIONS [None]
